FAERS Safety Report 14579612 (Version 2)
Quarter: 2018Q1

REPORT INFORMATION
  Report Type: Spontaneous
  Country: BR (occurrence: BR)
  Receive Date: 20180227
  Receipt Date: 20180321
  Transmission Date: 20180509
  Serious: Yes (Hospitalization, Other)
  Sender: FDA-Public Use
  Company Number: BR-ALEXION PHARMACEUTICALS INC-A201802069

PATIENT
  Age: 24 Year
  Sex: Male

DRUGS (2)
  1. SOLIRIS [Suspect]
     Active Substance: ECULIZUMAB
     Dosage: UNKNOWN
     Route: 065
  2. SOLIRIS [Suspect]
     Active Substance: ECULIZUMAB
     Indication: PAROXYSMAL NOCTURNAL HAEMOGLOBINURIA
     Dosage: UNKNOWN
     Route: 065

REACTIONS (4)
  - Hepatic function abnormal [Unknown]
  - Renal impairment [Unknown]
  - Blood creatinine increased [Not Recovered/Not Resolved]
  - Haemolysis [Not Recovered/Not Resolved]
